FAERS Safety Report 7715648-6 (Version None)
Quarter: 2011Q3

REPORT INFORMATION
  Report Type: 
  Country: None (occurrence: None)
  Receive Date: 20110823
  Receipt Date: 20110810
  Transmission Date: 20111222
  Serious: Yes (Life-Threatening)
  Sender: FDA-Public Use
  Company Number: 1000022939

PATIENT
  Age: 80 Year
  Sex: Male

DRUGS (7)
  1. ALLOPURINOL [Suspect]
     Indication: HYPERURICAEMIA
     Dosage: 100 MG I INM1 D,ORAL
     Route: 048
     Dates: start: 20090926
  2. NEBIVOLOL HCL [Suspect]
     Indication: HYPERTENSION
     Dosage: ORAL
     Route: 048
     Dates: start: 20090101, end: 20090901
  3. LASIX [Suspect]
     Indication: HYPERTENSION
     Dosage: 10 MG (10 MG, 1 IN 1 D), ORAL
     Route: 048
     Dates: end: 20090926
  4. CORDARONE [Suspect]
     Indication: ATRIAL FIBRILLATION
     Dosage: 1 DOSAGE FORM 1 IN 1 D, ORAL
     Route: 048
     Dates: start: 20090926
  5. ATORVASTATIN CALCIUM [Concomitant]
  6. DIGOXIN [Suspect]
     Indication: ATRIAL FIBRILLATION
     Dosage: 1 DOSAGE FORM (1 DOSAGE FORMS, 1 IN 1 D), ORAL
     Route: 048
     Dates: end: 20090926
  7. COTAREG (HCTZ, VALSARTAN) [Concomitant]

REACTIONS (6)
  - ELECTROCARDIOGRAM QT PROLONGED [None]
  - SINUS BRADYCARDIA [None]
  - MALAISE [None]
  - BLOOD CREATINE INCREASED [None]
  - CREATININE RENAL CLEARANCE DECREASED [None]
  - TORSADE DE POINTES [None]
